FAERS Safety Report 24256087 (Version 1)
Quarter: 2024Q3

REPORT INFORMATION
  Report Type: Spontaneous
  Country: JP (occurrence: JP)
  Receive Date: 20240827
  Receipt Date: 20240827
  Transmission Date: 20241017
  Serious: Yes (Other)
  Sender: BRISTOL MYERS SQUIBB
  Company Number: JP-BRISTOL-MYERS SQUIBB COMPANY-2024-132736

PATIENT
  Age: 76 Year
  Sex: Female

DRUGS (2)
  1. REVLIMID [Suspect]
     Active Substance: LENALIDOMIDE
     Indication: Plasma cell myeloma
     Dates: start: 201809, end: 202004
  2. REVLIMID [Suspect]
     Active Substance: LENALIDOMIDE
     Dosage: 41 COURSES ADMINISTERED
     Dates: start: 202005, end: 202306

REACTIONS (2)
  - Monoclonal immunoglobulin increased [Unknown]
  - Thoracic vertebral fracture [Unknown]
